FAERS Safety Report 10409147 (Version 1)
Quarter: 2014Q3

REPORT INFORMATION
  Report Type: Spontaneous
  Country: FR (occurrence: FR)
  Receive Date: 20140826
  Receipt Date: 20140826
  Transmission Date: 20150326
  Serious: Yes (Hospitalization)
  Sender: FDA-Public Use
  Company Number: PHHY2014FR103904

PATIENT
  Age: 76 Year
  Sex: Male

DRUGS (4)
  1. TAREG [Suspect]
     Active Substance: VALSARTAN
     Dosage: 1 DF, QD
     Route: 048
     Dates: start: 2009, end: 20140730
  2. ZYLORIC [Suspect]
     Active Substance: ALLOPURINOL
     Dosage: 1 DF, QD
     Route: 048
     Dates: start: 1999, end: 20140730
  3. CHONDRO.SUL.SOD [Suspect]
     Active Substance: SODIUM CHONDROITIN SULFATE
     Dosage: 1 DF, QD
     Route: 048
     Dates: start: 1999, end: 20140730
  4. XARELTO [Suspect]
     Active Substance: RIVAROXABAN
     Indication: ATRIAL FLUTTER
     Dosage: 15 MG, QD
     Route: 048
     Dates: start: 201209, end: 20140730

REACTIONS (1)
  - Cerebral haemorrhage [Not Recovered/Not Resolved]

NARRATIVE: CASE EVENT DATE: 20140730
